FAERS Safety Report 7733141-1 (Version None)
Quarter: 2011Q3

REPORT INFORMATION
  Report Type: 
  Country: None (occurrence: None)
  Receive Date: 20110902
  Receipt Date: 20110902
  Transmission Date: 20111222
  Serious: Yes (Life-Threatening, Hospitalization)
  Sender: FDA-Public Use
  Company Number: None

PATIENT
  Sex: Female
  Weight: 83.0083 kg

DRUGS (1)
  1. PEGINFERON ALFA - 2B 444 MCG. SCHERING CORPORATION [Suspect]
     Indication: MALIGNANT MELANOMA
     Dosage: 444 MCG. SQ
     Route: 058
     Dates: start: 20110725

REACTIONS (1)
  - AORTIC THROMBOSIS [None]
